FAERS Safety Report 19039275 (Version 1)
Quarter: 2021Q1

REPORT INFORMATION
  Report Type: Spontaneous
  Country: BR (occurrence: BR)
  Receive Date: 20210322
  Receipt Date: 20210322
  Transmission Date: 20210420
  Serious: Yes (Other)
  Sender: FDA-Public Use
  Company Number: BR-PFIZER INC-2021244751

PATIENT
  Sex: Female

DRUGS (1)
  1. DEPO?PROVERA [Suspect]
     Active Substance: MEDROXYPROGESTERONE ACETATE
     Indication: MENORRHAGIA
     Dosage: UNK

REACTIONS (7)
  - Pain [Unknown]
  - Blood iron decreased [Unknown]
  - Migraine [Unknown]
  - Chondrosarcoma [Unknown]
  - Anxiety [Unknown]
  - Cyst [Unknown]
  - Off label use [Unknown]

NARRATIVE: CASE EVENT DATE: 2017
